FAERS Safety Report 12182932 (Version 1)
Quarter: 2016Q1

REPORT INFORMATION
  Report Type: Report from Study
  Country: BR (occurrence: BR)
  Receive Date: 20160316
  Receipt Date: 20160316
  Transmission Date: 20160526
  Serious: Yes (Hospitalization, Other)
  Sender: FDA-Public Use
  Company Number: PHHY2015BR155862

PATIENT
  Age: 60 Year
  Sex: Female
  Weight: 52 kg

DRUGS (9)
  1. MELOXICAM. [Concomitant]
     Active Substance: MELOXICAM
     Indication: PAIN
     Dosage: 2 DF, QD
     Route: 048
     Dates: start: 201410
  2. EXEMESTANE. [Concomitant]
     Active Substance: EXEMESTANE
     Indication: METASTASES TO BONE
     Dosage: 1 DF, QD
     Route: 048
     Dates: start: 201503
  3. LYRICA [Concomitant]
     Active Substance: PREGABALIN
     Indication: DIURETIC THERAPY
     Dosage: 1 DF, QD
     Route: 048
  4. GLIFAGE [Concomitant]
     Active Substance: METFORMIN HYDROCHLORIDE
     Indication: DIABETES MELLITUS
     Dosage: 2 DF, BID
     Route: 048
  5. DRAMIN B6 [Concomitant]
     Indication: METASTASES TO BONE
     Dosage: 2 DF, QD
     Route: 048
     Dates: start: 201410
  6. PYRIDOXAMINE HYDROCHLORIDE\THIAMINE HYDROCHLORIDE\CYANOCOBALAMIN [Concomitant]
     Active Substance: CYANOCOBALAMIN\PYRIDOXAMINE HYDROCHLORIDE\THIAMINE HYDROCHLORIDE
     Indication: VITAMIN SUPPLEMENTATION
     Dosage: 1 DF, QD
     Route: 048
  7. AFINITOR [Suspect]
     Active Substance: EVEROLIMUS
     Indication: BREAST CANCER METASTATIC
     Dosage: 1 DF, QD
     Route: 048
     Dates: start: 201503, end: 201602
  8. OXYCONTIN [Concomitant]
     Active Substance: OXYCODONE HYDROCHLORIDE
     Indication: METASTASES TO BONE
     Dosage: 2 DF, QD
     Route: 048
     Dates: start: 201410
  9. GLIMEPIRIDE. [Concomitant]
     Active Substance: GLIMEPIRIDE
     Indication: DIABETES MELLITUS
     Dosage: 3 DF, QD
     Route: 048

REACTIONS (11)
  - Accident [Unknown]
  - Pleural effusion [Recovering/Resolving]
  - Gallbladder disorder [Unknown]
  - Weight decreased [Recovered/Resolved]
  - Cholelithiasis [Unknown]
  - Cardiac failure [Recovered/Resolved]
  - Inflammation [Unknown]
  - Non-cardiac chest pain [Recovering/Resolving]
  - Pulmonary oedema [Recovering/Resolving]
  - Weight increased [Recovered/Resolved]
  - Limb injury [Unknown]

NARRATIVE: CASE EVENT DATE: 201506
